FAERS Safety Report 6466578-1 (Version None)
Quarter: 2009Q4

REPORT INFORMATION
  Report Type: 
  Country: None (occurrence: None)
  Receive Date: 20091201
  Receipt Date: 20091201
  Transmission Date: 20100525
  Serious: Yes (Death)
  Sender: FDA-Public Use
  Company Number: None

PATIENT
  Age: 52 Year
  Sex: Male
  Weight: 81.6475 kg

DRUGS (2)
  1. ZOLPIDEM TARTRATE [Suspect]
     Indication: ANXIETY
     Dosage: 10MG 1 AT BEDTIME
     Dates: start: 20090828, end: 20090911
  2. ZOLPIDEM TARTRATE [Suspect]
     Indication: INSOMNIA
     Dosage: 10MG 1 AT BEDTIME
     Dates: start: 20090828, end: 20090911

REACTIONS (3)
  - FEELING ABNORMAL [None]
  - NIGHT SWEATS [None]
  - WEIGHT DECREASED [None]
